FAERS Safety Report 9398282 (Version 2)
Quarter: 2014Q2

REPORT INFORMATION
  Report Type: Spontaneous
  Country: IT (occurrence: IT)
  Receive Date: 20130712
  Receipt Date: 20140624
  Transmission Date: 20141212
  Serious: Yes (Other)
  Sender: FDA-Public Use
  Company Number: IT-009507513-1307ITA004277

PATIENT
  Age: 69 Year
  Sex: Male
  Weight: 60 kg

DRUGS (3)
  1. BOCEPREVIR [Suspect]
     Indication: HEPATITIS C ANTIBODY POSITIVE
     Dosage: UNK
     Route: 048
     Dates: start: 20130416, end: 20130515
  2. RIBAVIRIN [Suspect]
     Indication: HEPATITIS C ANTIBODY POSITIVE
     Dosage: UNK
     Route: 048
     Dates: start: 20130319, end: 20130516
  3. PEGINTERFERON ALFA-2A [Suspect]
     Indication: HEPATITIS C ANTIBODY POSITIVE
     Dosage: UNK
     Dates: start: 20130319, end: 20130514

REACTIONS (6)
  - Amylase increased [Recovered/Resolved]
  - Lipase increased [Recovered/Resolved]
  - Abdominal pain [Recovered/Resolved]
  - Pancreatitis acute [Recovered/Resolved]
  - Nausea [Recovered/Resolved]
  - Vomiting [Recovered/Resolved]
